FAERS Safety Report 5377679-3 (Version None)
Quarter: 2007Q3

REPORT INFORMATION
  Report Type: 
  Country: None (occurrence: None)
  Receive Date: 20070703
  Receipt Date: 20070626
  Transmission Date: 20080115
  Serious: Yes (Other)
  Sender: FDA-Public Use
  Company Number: FR-PFIZER INC-2007042232

PATIENT
  Sex: Female

DRUGS (3)
  1. LYRICA [Suspect]
     Indication: NEURALGIA
     Dosage: DAILY DOSE:75MG
  2. LYRICA [Suspect]
     Indication: CRANIAL NEUROPATHY
  3. ALL OTHER THERAPEUTIC PRODUCTS [Concomitant]

REACTIONS (6)
  - ASTHMA [None]
  - FALL [None]
  - FATIGUE [None]
  - MALAISE [None]
  - PAIN [None]
  - TINNITUS [None]
